FAERS Safety Report 9127394 (Version 1)
Quarter: 2013Q1

REPORT INFORMATION
  Report Type: Spontaneous
  Country: US (occurrence: US)
  Receive Date: 20130228
  Receipt Date: 20130228
  Transmission Date: 20140127
  Serious: No
  Sender: FDA-Public Use
  Company Number: US-GLAXOSMITHKLINE-A0973227A

PATIENT
  Age: 23 Year
  Sex: Female

DRUGS (4)
  1. LAMOTRIGINE [Suspect]
     Indication: BIPOLAR DISORDER
     Dosage: 50MG PER DAY
     Route: 048
     Dates: start: 20120407
  2. LEXAPRO [Concomitant]
  3. XANAX [Concomitant]
  4. KLONOPIN [Concomitant]

REACTIONS (2)
  - Rash generalised [Not Recovered/Not Resolved]
  - Rash pruritic [Unknown]
